FAERS Safety Report 4795093-6 (Version None)
Quarter: 2005Q4

REPORT INFORMATION
  Report Type: 
  Country: None (occurrence: None)
  Receive Date: 20051006
  Receipt Date: 20050927
  Transmission Date: 20060501
  Serious: Yes (Hospitalization)
  Sender: FDA-Public Use
  Company Number: 2005135474

PATIENT
  Age: 48 Year
  Sex: Male
  Weight: 120 kg

DRUGS (5)
  1. SORTIS (ATORVASTATIN) [Suspect]
     Indication: HYPERCHOLESTEROLAEMIA
     Dosage: 20 MG (20 MG, 1 IN  1 D), ORAL
     Route: 048
     Dates: start: 20030601, end: 20040501
  2. LEVOTHYROXINE SODIUM [Concomitant]
  3. METOPROLOL TARTRATE [Concomitant]
  4. RAMIPRIL [Concomitant]
  5. ASS 9ACETYLSALICYLIC ACID) [Concomitant]

REACTIONS (4)
  - BLOOD CREATINE PHOSPHOKINASE INCREASED [None]
  - DECREASED ACTIVITY [None]
  - DRUG RESISTANCE [None]
  - MUSCLE SPASMS [None]
